FAERS Safety Report 18120527 (Version 2)
Quarter: 2020Q3

REPORT INFORMATION
  Report Type: Spontaneous
  Country: US (occurrence: US)
  Receive Date: 20200806
  Receipt Date: 20200909
  Transmission Date: 20201103
  Serious: No
  Sender: FDA-Public Use
  Company Number: US-BAUSCH-BL-2020-020712

PATIENT
  Age: 68 Year
  Sex: Female
  Weight: 59.02 kg

DRUGS (3)
  1. MINOCIN [Suspect]
     Active Substance: MINOCYCLINE HYDROCHLORIDE
     Dosage: STARTED COUPLE OF MONTHS AGO, TWO 50 MG CAPSULES TWICE DAILY FOR ABOUT A MONTH
     Route: 048
     Dates: start: 202005, end: 2020
  2. MINOCIN [Suspect]
     Active Substance: MINOCYCLINE HYDROCHLORIDE
     Indication: ACNE
     Dosage: USED FOR 25 YEARS, NEEDED IT EVERY 3 TO 4 MONTHS OR SO
     Route: 048
     Dates: start: 1995
  3. GENERIC MINOCYCLINE [Suspect]
     Active Substance: MINOCYCLINE HYDROCHLORIDE
     Indication: ACNE
     Dosage: PATIENT LAST TRIED THE MEDICATION 5 YEARS AGO
     Route: 048
     Dates: end: 2015

REACTIONS (3)
  - Drug ineffective [Unknown]
  - Product availability issue [Unknown]
  - Product substitution issue [Unknown]
